FAERS Safety Report 9505551 (Version 1)
Quarter: 2013Q1

REPORT INFORMATION
  Report Type: Spontaneous
  Country: US (occurrence: None)
  Receive Date: 20130220
  Receipt Date: 20130220
  Transmission Date: 20140127
  Serious: No
  Sender: FDA-Public Use
  Company Number: 1000039797

PATIENT
  Age: 53 Year
  Sex: Male

DRUGS (5)
  1. VIIBYRD (VILAZODONE HYDROCHLORIDE) [Suspect]
     Indication: SEASONAL AFFECTIVE DISORDER
     Dosage: 10 MG (10 MG, 1 IN 1 D), ORAL
     Route: 048
     Dates: start: 20121005, end: 20121011
  2. WELLBUTRIN XL (BUPROPION HYDROCHLORIDE) (BUPROPION HYDROCHLORIDE) [Concomitant]
  3. XYZAL (LEVOCETIRIZINE DIHYDROCHLORIDE) (LEVOCETIRIZINE DIHYDROCHLORIDE) [Concomitant]
  4. NASONEX (MOMETASONE FUROATE) (MOMETASONE FUROATE) [Concomitant]
  5. ASTEPRO (AZELASTINE HYDROCHLORIDE) (AZELASTINE HYDROCHLORIDE) [Concomitant]

REACTIONS (3)
  - Insomnia [None]
  - Nasopharyngitis [None]
  - Off label use [None]
